FAERS Safety Report 12870337 (Version 13)
Quarter: 2019Q3

REPORT INFORMATION
  Report Type: Spontaneous
  Country: US (occurrence: US)
  Receive Date: 20161021
  Receipt Date: 20190822
  Transmission Date: 20191004
  Serious: Yes (Disabling)
  Sender: FDA-Public Use
  Company Number: US-SA-2016SA189959

PATIENT
  Age: 56 Year
  Sex: Male
  Weight: 153 kg

DRUGS (7)
  1. AUBAGIO [Suspect]
     Active Substance: TERIFLUNOMIDE
     Indication: MULTIPLE SCLEROSIS
     Dosage: 14 MG,QD
     Route: 048
     Dates: start: 20151015
  2. NORTRIPTYLINE [Concomitant]
     Active Substance: NORTRIPTYLINE
     Indication: MIGRAINE
  3. AUBAGIO [Suspect]
     Active Substance: TERIFLUNOMIDE
     Dosage: 14 MG,QD
     Route: 048
     Dates: start: 20151113
  4. NORTRIPTYLINE [Concomitant]
     Active Substance: NORTRIPTYLINE
     Indication: SLEEP DISORDER
     Dosage: 50 MG,Q6H
     Dates: start: 2013
  5. TOLTERODINE [Concomitant]
     Active Substance: TOLTERODINE
     Indication: BLADDER DISORDER
     Dosage: 4 MG,QD
     Dates: start: 2007
  6. SERTRALINE [Concomitant]
     Active Substance: SERTRALINE HYDROCHLORIDE
     Indication: DEPRESSION
     Dosage: 100 MG,QD
     Dates: start: 2013
  7. HYDROCODONE BITARTRATE AND ACETAMINOPHEN [Concomitant]
     Active Substance: ACETAMINOPHEN\HYDROCODONE BITARTRATE
     Indication: PAIN
     Dosage: DOSE:10/325 (UNITS UNKNOWN) 4X-6X
     Dates: start: 2007

REACTIONS (13)
  - Gait inability [Unknown]
  - Hyperhidrosis [Unknown]
  - Muscular weakness [Unknown]
  - Hypoaesthesia [Not Recovered/Not Resolved]
  - Wrist fracture [Unknown]
  - Contusion [Recovered/Resolved]
  - Movement disorder [Not Recovered/Not Resolved]
  - Alopecia [Not Recovered/Not Resolved]
  - Chills [Unknown]
  - Paraesthesia [Unknown]
  - Fall [Unknown]
  - Fatigue [Unknown]
  - Muscle spasms [Unknown]

NARRATIVE: CASE EVENT DATE: 201701
